FAERS Safety Report 23295560 (Version 1)
Quarter: 2023Q4

REPORT INFORMATION
  Report Type: Spontaneous
  Country: US (occurrence: US)
  Receive Date: 20231214
  Receipt Date: 20231214
  Transmission Date: 20240110
  Serious: No
  Sender: FDA-Public Use
  Company Number: US-ALVOGEN-2023091876

PATIENT
  Sex: Male

DRUGS (2)
  1. FENTANYL [Suspect]
     Active Substance: FENTANYL\FENTANYL CITRATE
     Indication: Product used for unknown indication
     Dosage: ONE BOX
  2. FENTANYL [Suspect]
     Active Substance: FENTANYL\FENTANYL CITRATE
     Indication: Product used for unknown indication
     Dosage: SECOND BOX?EXPIRATION DATE: UU-AUG-2025?STRENGTH: 50 MCG/ HR?MANUFACTURING DATE: 02-AUG-2022
     Dates: start: 20230626, end: 20230628

REACTIONS (4)
  - Illness [Recovered/Resolved]
  - Withdrawal syndrome [Recovered/Resolved]
  - Headache [Recovered/Resolved]
  - Vomiting [Recovered/Resolved]
